FAERS Safety Report 9925571 (Version 1)
Quarter: 2014Q1

REPORT INFORMATION
  Report Type: Spontaneous
  Country: US (occurrence: None)
  Receive Date: 20140225
  Receipt Date: 20140225
  Transmission Date: 20141002
  Serious: Yes (Hospitalization)
  Sender: FDA-Public Use
  Company Number: None

PATIENT
  Age: 53 Year
  Sex: Female
  Weight: 86 kg

DRUGS (1)
  1. PACLITAXEL (TAXOL) [Suspect]

REACTIONS (10)
  - Nausea [None]
  - Vomiting [None]
  - Dehydration [None]
  - Moaning [None]
  - Ascites [None]
  - Hypotension [None]
  - Tachycardia [None]
  - Pulmonary oedema [None]
  - Wheezing [None]
  - Eating disorder [None]
